FAERS Safety Report 4771162-1 (Version None)
Quarter: 2005Q3

REPORT INFORMATION
  Report Type: 
  Country: None (occurrence: None)
  Receive Date: 20050914
  Receipt Date: 20050830
  Transmission Date: 20060218
  Serious: Yes (Other)
  Sender: FDA-Public Use
  Company Number: USA0508106947

PATIENT
  Age: 59 Year
  Sex: Female

DRUGS (4)
  1. ALIMTA [Suspect]
     Indication: ADENOCARCINOMA
     Dosage: 500 MG/M2
     Dates: start: 20050729
  2. DECADRON [Concomitant]
  3. FOLIC ACID [Concomitant]
  4. VITAMIN B-12 [Concomitant]

REACTIONS (4)
  - CELLULITIS [None]
  - DIFFICULTY IN WALKING [None]
  - PAIN [None]
  - RASH MACULAR [None]
